FAERS Safety Report 24395662 (Version 1)
Quarter: 2024Q4

REPORT INFORMATION
  Report Type: Spontaneous
  Country: AU (occurrence: AU)
  Receive Date: 20241004
  Receipt Date: 20241004
  Transmission Date: 20250114
  Serious: Yes (Death)
  Sender: JOHNSON AND JOHNSON
  Company Number: AU-JNJFOC-20241002255

PATIENT
  Age: 89 Year
  Sex: Male

DRUGS (1)
  1. RISPERDAL [Suspect]
     Active Substance: RISPERIDONE
     Indication: Product used for unknown indication
     Route: 065

REACTIONS (6)
  - Fall [Fatal]
  - Head injury [Fatal]
  - Femur fracture [Fatal]
  - Weight decreased [Fatal]
  - Intentional product misuse [Fatal]
  - Product prescribing error [Fatal]

NARRATIVE: CASE EVENT DATE: 20230101
